FAERS Safety Report 7807555-5 (Version None)
Quarter: 2011Q4

REPORT INFORMATION
  Report Type: 
  Country: None (occurrence: None)
  Receive Date: 20111011
  Receipt Date: 20110930
  Transmission Date: 20120403
  Serious: Yes (Death)
  Sender: FDA-Public Use
  Company Number: FR-GLAXOSMITHKLINE-B0751887A

PATIENT
  Sex: Female

DRUGS (3)
  1. MORPHINE [Concomitant]
     Dates: start: 20110809
  2. DURAGESIC-100 [Concomitant]
     Dates: start: 20110809
  3. ARIXTRA [Suspect]
     Indication: THROMBOSIS PROPHYLAXIS
     Dosage: 2.5MG PER DAY
     Route: 058
     Dates: start: 20110809, end: 20110816

REACTIONS (2)
  - ANAEMIA [None]
  - PROTHROMBIN LEVEL DECREASED [None]
